FAERS Safety Report 9100332 (Version 2)
Quarter: 2013Q1

REPORT INFORMATION
  Report Type: Spontaneous
  Country: JP (occurrence: JP)
  Receive Date: 20130215
  Receipt Date: 20130226
  Transmission Date: 20140127
  Serious: Yes (Other)
  Sender: FDA-Public Use
  Company Number: JP-BRISTOL-MYERS SQUIBB COMPANY-17281965

PATIENT
  Age: 71 Year
  Sex: Male
  Weight: 71 kg

DRUGS (13)
  1. ABILIFY TABS [Suspect]
     Indication: DELUSION
     Dosage: 15JU12-9SP12:12?10SP-13SP:18?14SP12-13DE:30?14DE-04JA13:15?5JA13-7JA13:12?8JA-10JA,11JA-15JA:6
     Route: 048
     Dates: start: 20120329, end: 20130115
  2. SELENICA-R [Suspect]
     Indication: ANGER
     Dosage: TABS?7DEC12-13DEC12:600?14DEC12-25DEC12:400?26DEC12,27DEC12,28DEC12-4JAN13:200?DOSES IN MG
     Route: 048
     Dates: start: 2012, end: 20130104
  3. NEORAL [Concomitant]
  4. PREDONINE [Concomitant]
  5. LANSOPRAZOLE [Concomitant]
     Dosage: ORODISPERSIBLE TABS
     Route: 048
  6. AMLODIPINE [Concomitant]
     Dosage: TABLET
  7. NEORAL [Concomitant]
     Dosage: CAPSULE
  8. ROHYPNOL [Concomitant]
     Dosage: TABS
  9. SENNOSIDE [Concomitant]
     Dosage: TABS
  10. ZYRTEC [Concomitant]
     Dosage: TABS
  11. BENZALIN [Concomitant]
     Dosage: TABS
  12. FEBUXOSTAT [Concomitant]
     Dosage: TABS
     Dates: start: 20121114
  13. BROMOCRIPTINE MESYLATE [Concomitant]
     Dates: start: 20120910, end: 20130104

REACTIONS (2)
  - Blood glucose decreased [Recovered/Resolved]
  - Carnitine decreased [Unknown]
